FAERS Safety Report 8512719-1 (Version None)
Quarter: 2012Q3

REPORT INFORMATION
  Report Type: 
  Country: None (occurrence: None)
  Receive Date: 20120716
  Receipt Date: 20120711
  Transmission Date: 20120928
  Serious: Yes (Hospitalization)
  Sender: FDA-Public Use
  Company Number: GB-JNJFOC-20120510309

PATIENT
  Age: 77 Year
  Sex: Male
  Weight: 73 kg

DRUGS (14)
  1. LACTULOSE [Concomitant]
  2. CLINDAMYCIN [Concomitant]
  3. FOLIC ACID [Concomitant]
  4. ALL OTHER THERAPEUTIC PRODUCTS [Concomitant]
  5. LOVAZA [Concomitant]
  6. PREDNISOLONE [Concomitant]
  7. STEROIDS NOS [Concomitant]
     Indication: RHEUMATOID ARTHRITIS
  8. ASCORBIC ACID [Concomitant]
  9. METHOTREXATE [Concomitant]
     Indication: RHEUMATOID ARTHRITIS
  10. AMITRIPTYLINE HCL [Concomitant]
  11. REMICADE [Suspect]
     Indication: RHEUMATOID ARTHRITIS
     Route: 042
     Dates: start: 20050421
  12. OMEPRAZOLE [Concomitant]
  13. ADCAL [Concomitant]
  14. ACETAMINOPHEN [Concomitant]

REACTIONS (1)
  - STAPHYLOCOCCAL INFECTION [None]
